FAERS Safety Report 4715346-7 (Version None)
Quarter: 2005Q3

REPORT INFORMATION
  Report Type: 
  Country: None (occurrence: None)
  Receive Date: 20050715
  Receipt Date: 20050311
  Transmission Date: 20060218
  Serious: Yes (Hospitalization)
  Sender: FDA-Public Use
  Company Number: US-MERCK-0503USA02619

PATIENT
  Age: 54 Year
  Sex: Female
  Weight: 68 kg

DRUGS (9)
  1. VIOXX [Suspect]
     Indication: ARTHRITIS
     Route: 048
     Dates: start: 20000101, end: 20040930
  2. BISOPROLOL [Concomitant]
     Route: 065
  3. MONOPRIL [Concomitant]
     Route: 065
     Dates: start: 20010101
  4. LIPITOR [Concomitant]
     Route: 065
  5. PREMARIN [Concomitant]
     Route: 065
  6. ACTONEL [Concomitant]
     Route: 065
  7. HYDROCODONE HYDROCHLORIDE [Concomitant]
     Route: 065
     Dates: start: 20010101
  8. ASPIRIN [Concomitant]
     Route: 065
     Dates: start: 20010101
  9. NORVASC [Concomitant]
     Route: 065
     Dates: start: 20010101

REACTIONS (25)
  - ANEURYSM [None]
  - ANGINA PECTORIS [None]
  - ANXIETY DISORDER [None]
  - AORTIC ANEURYSM [None]
  - ARTHRALGIA [None]
  - ATHEROSCLEROSIS [None]
  - BACK PAIN [None]
  - BLOOD PRESSURE INCREASED [None]
  - CARDIAC DISORDER [None]
  - CAROTID ARTERY OCCLUSION [None]
  - CAROTID ARTERY STENOSIS [None]
  - CAROTID BRUIT [None]
  - CEREBROVASCULAR ACCIDENT [None]
  - CHEST PAIN [None]
  - CONTUSION [None]
  - CORONARY ARTERY DISEASE [None]
  - DEPRESSION [None]
  - DRUG INEFFECTIVE [None]
  - FALL [None]
  - HEADACHE [None]
  - HYPERTENSION [None]
  - JOINT INJURY [None]
  - LACUNAR INFARCTION [None]
  - OSTEOPOROSIS [None]
  - SINUS BRADYCARDIA [None]
